FAERS Safety Report 8546756-8 (Version None)
Quarter: 2012Q3

REPORT INFORMATION
  Report Type: 
  Country: None (occurrence: None)
  Receive Date: 20120727
  Receipt Date: 20120202
  Transmission Date: 20120928
  Serious: No
  Sender: FDA-Public Use
  Company Number: US-ASTRAZENECA-2012SE07416

PATIENT
  Sex: Male

DRUGS (1)
  1. SEROQUEL XR [Suspect]
     Indication: BIPOLAR I DISORDER
     Route: 048

REACTIONS (6)
  - INSOMNIA [None]
  - ANGER [None]
  - DRUG DOSE OMISSION [None]
  - MIDDLE INSOMNIA [None]
  - ADVERSE EVENT [None]
  - CONDITION AGGRAVATED [None]
